FAERS Safety Report 10082524 (Version 1)
Quarter: 2014Q2

REPORT INFORMATION
  Report Type: Spontaneous
  Country: US (occurrence: US)
  Receive Date: 20140416
  Receipt Date: 20140416
  Transmission Date: 20141212
  Serious: No
  Sender: FDA-Public Use
  Company Number: US-BIOGENIDEC-2014BI034608

PATIENT
  Age: 47 Year
  Sex: Female

DRUGS (19)
  1. AVONEX [Suspect]
     Indication: MULTIPLE SCLEROSIS
     Route: 030
     Dates: start: 20140318
  2. COMBIVENT [Concomitant]
  3. BENTYL [Concomitant]
  4. LANTUS [Concomitant]
  5. NOVOLOG [Concomitant]
  6. OXYCODONE [Concomitant]
  7. CARDIZEM [Concomitant]
  8. LIDOCAINE [Concomitant]
  9. ATIVAN [Concomitant]
  10. DEPO-PROVERA [Concomitant]
  11. LASIX [Concomitant]
  12. INDERAL [Concomitant]
  13. PROFONIX [Concomitant]
  14. TRAZOCONE [Concomitant]
  15. PRAZOSIN [Concomitant]
  16. FIORICET [Concomitant]
  17. NICODERM [Concomitant]
  18. SCOPALAMINE [Concomitant]
  19. CLOZERIL [Concomitant]

REACTIONS (4)
  - Hemiparesis [Unknown]
  - Fall [Recovered/Resolved]
  - Drug ineffective [Not Recovered/Not Resolved]
  - Multiple sclerosis relapse [Not Recovered/Not Resolved]
